FAERS Safety Report 15542784 (Version 1)
Quarter: 2018Q4

REPORT INFORMATION
  Report Type: Spontaneous
  Country: US (occurrence: US)
  Receive Date: 20181023
  Receipt Date: 20181023
  Transmission Date: 20190205
  Serious: Yes (Life-Threatening, Hospitalization, Other)
  Sender: FDA-Public Use
  Company Number: US-ACELLA PHARMACEUTICALS, LLC-2056890

PATIENT
  Age: 68 Year
  Sex: Male

DRUGS (4)
  1. WARFARIN SODIUM. [Concomitant]
     Active Substance: WARFARIN SODIUM
  2. GABAPENTIN. [Suspect]
     Active Substance: GABAPENTIN
  3. AMLODIPINE [Suspect]
     Active Substance: AMLODIPINE BESYLATE
  4. INSULIN [Concomitant]
     Active Substance: INSULIN NOS

REACTIONS (16)
  - Hypotension [Unknown]
  - Metabolic acidosis [Unknown]
  - Cardiogenic shock [Unknown]
  - Fluid overload [Unknown]
  - Oliguria [Unknown]
  - Right ventricular diastolic collapse [Unknown]
  - Lactic acidosis [Unknown]
  - Hepatic cirrhosis [Unknown]
  - Hyperglycaemia [Unknown]
  - Hyperkalaemia [Unknown]
  - Acute kidney injury [Unknown]
  - Pericardial effusion [Unknown]
  - Cardiac tamponade [Unknown]
  - Respiratory failure [Unknown]
  - Dyspnoea [Unknown]
  - Shock [Unknown]
